FAERS Safety Report 9966841 (Version 1)
Quarter: 2014Q1

REPORT INFORMATION
  Report Type: Report from Study
  Country: US (occurrence: US)
  Receive Date: 20140305
  Receipt Date: 20140305
  Transmission Date: 20141002
  Serious: No
  Sender: FDA-Public Use
  Company Number: US-ABBVIE-13P-163-1120553-00

PATIENT
  Sex: Female
  Weight: 69.46 kg

DRUGS (8)
  1. HUMIRA [Suspect]
     Indication: RHEUMATOID ARTHRITIS
     Dates: start: 2000
  2. PREDNISONE [Concomitant]
     Indication: PRODUCT USED FOR UNKNOWN INDICATION
  3. CELEBREX [Concomitant]
     Indication: PRODUCT USED FOR UNKNOWN INDICATION
  4. ALEVE [Concomitant]
     Indication: PRODUCT USED FOR UNKNOWN INDICATION
  5. VITAMIN B12 [Concomitant]
     Indication: PRODUCT USED FOR UNKNOWN INDICATION
  6. FISH OIL [Concomitant]
     Indication: PRODUCT USED FOR UNKNOWN INDICATION
  7. CO Q10 [Concomitant]
     Indication: PRODUCT USED FOR UNKNOWN INDICATION
  8. MULTIVITAMIN [Concomitant]
     Indication: PRODUCT USED FOR UNKNOWN INDICATION

REACTIONS (4)
  - Skin disorder [Unknown]
  - Eye swelling [Unknown]
  - Eye oedema [Unknown]
  - Lip swelling [Unknown]
